FAERS Safety Report 7865878-8 (Version None)
Quarter: 2011Q4

REPORT INFORMATION
  Report Type: 
  Country: None (occurrence: None)
  Receive Date: 20111028
  Receipt Date: 20110310
  Transmission Date: 20120403
  Serious: No
  Sender: FDA-Public Use
  Company Number: US-GLAXOSMITHKLINE-A0918162A

PATIENT
  Sex: Female

DRUGS (1)
  1. ADVAIR DISKUS 100/50 [Suspect]
     Indication: PRODUCT USED FOR UNKNOWN INDICATION
     Route: 065
     Dates: start: 20110309, end: 20110301

REACTIONS (6)
  - HEADACHE [None]
  - DYSGEUSIA [None]
  - FEELING ABNORMAL [None]
  - ADVERSE DRUG REACTION [None]
  - COUGH [None]
  - CHEST DISCOMFORT [None]
